FAERS Safety Report 12802513 (Version 2)
Quarter: 2016Q4

REPORT INFORMATION
  Report Type: Spontaneous
  Country: TR (occurrence: TR)
  Receive Date: 20161003
  Receipt Date: 20161005
  Transmission Date: 20170207
  Serious: Yes (Life-Threatening, Hospitalization, Other)
  Sender: FDA-Public Use
  Company Number: TR-VALIDUS PHARMACEUTICALS LLC-TR-2016VAL002761

PATIENT
  Age: 38 Year
  Sex: Male

DRUGS (2)
  1. MEROPENEM. [Suspect]
     Active Substance: MEROPENEM
     Indication: ANTIBIOTIC THERAPY
     Dosage: 3 G, QD
     Route: 042
  2. PETHIDINE HYDROCHLORIDE [Suspect]
     Active Substance: MEPERIDINE HYDROCHLORIDE
     Indication: ANALGESIC THERAPY
     Dosage: 50 MG, QD
     Route: 065

REACTIONS (16)
  - Electrocardiogram abnormal [Recovered/Resolved]
  - Eosinophilic myocarditis [Recovered/Resolved]
  - Lung infiltration [Recovering/Resolving]
  - Blood creatine phosphokinase MB increased [Recovering/Resolving]
  - Angina pectoris [Recovered/Resolved]
  - Rash [Recovered/Resolved]
  - Myocardial necrosis [Recovering/Resolving]
  - Eosinophilia [Recovered/Resolved]
  - Breath sounds abnormal [Recovering/Resolving]
  - Rales [Recovering/Resolving]
  - Troponin I increased [Recovered/Resolved]
  - Ventricular hypertrophy [Recovered/Resolved]
  - Hypereosinophilic syndrome [Recovered/Resolved]
  - Biopsy heart [Recovered/Resolved]
  - Eosinophilic pneumonia [Recovering/Resolving]
  - Dyspnoea [Recovering/Resolving]
